FAERS Safety Report 8156614-9 (Version None)
Quarter: 2012Q1

REPORT INFORMATION
  Report Type: 
  Country: None (occurrence: None)
  Receive Date: 20120222
  Receipt Date: 20120207
  Transmission Date: 20120608
  Serious: Yes (Hospitalization)
  Sender: FDA-Public Use
  Company Number: US-WATSON-2010-14468

PATIENT
  Age: 28 Year
  Sex: Female
  Weight: 90 kg

DRUGS (2)
  1. CITALOPRAM HYDROBROMIDE [Suspect]
     Indication: DEPRESSION
     Dosage: UNK
  2. SCOPOLAMINE [Suspect]
     Indication: PROCEDURAL NAUSEA
     Dosage: UNK
     Route: 062

REACTIONS (2)
  - DRUG INTERACTION [None]
  - ANTICHOLINERGIC SYNDROME [None]
